FAERS Safety Report 9209893 (Version 1)
Quarter: 2013Q1

REPORT INFORMATION
  Report Type: Spontaneous
  Country: US (occurrence: None)
  Receive Date: 20120820
  Receipt Date: 20120820
  Transmission Date: 20140127
  Serious: No
  Sender: FDA-Public Use
  Company Number: 1000030980

PATIENT
  Age: 49 Year
  Sex: Male

DRUGS (3)
  1. VIIBRYD [Suspect]
     Dosage: 10 MG (10 MG, 1 IN 1 D), ORAL
     Route: 048
     Dates: start: 201205, end: 201205
  2. VIIBRYD [Suspect]
     Dosage: 20MMG (20 MG, 1 IN 1 D), ORAL
     Route: 048
     Dates: start: 201205, end: 201205
  3. HYDROCODONE (HYDROCODONE ) (HYDROCODONE) [Concomitant]

REACTIONS (9)
  - Panic attack [None]
  - Nightmare [None]
  - Crying [None]
  - Chills [None]
  - Anxiety [None]
  - Confusional state [None]
  - Agitation [None]
  - Mood swings [None]
  - Irritability [None]
